FAERS Safety Report 4727256-X (Version None)
Quarter: 2005Q3

REPORT INFORMATION
  Report Type: 
  Country: None (occurrence: None)
  Receive Date: 20050728
  Receipt Date: 20041203
  Transmission Date: 20060218
  Serious: Yes (Other)
  Sender: FDA-Public Use
  Company Number: GB-GLAXOSMITHKLINE-B0359474A

PATIENT
  Sex: Female

DRUGS (2)
  1. SEROXAT [Suspect]
     Indication: DEPRESSION
     Route: 065
     Dates: start: 20000823, end: 20020315
  2. PROPRANOLOL [Concomitant]
     Indication: ANXIETY
     Route: 065

REACTIONS (3)
  - COMPLETED SUICIDE [None]
  - ILL-DEFINED DISORDER [None]
  - OVERDOSE [None]
